FAERS Safety Report 5235064-9 (Version None)
Quarter: 2007Q1

REPORT INFORMATION
  Report Type: 
  Country: None (occurrence: None)
  Receive Date: 20070207
  Receipt Date: 20070201
  Transmission Date: 20070707
  Serious: Yes (Hospitalization)
  Sender: FDA-Public Use
  Company Number: TPA2007A00161

PATIENT
  Age: 68 Year
  Sex: Female
  Weight: 72.5755 kg

DRUGS (5)
  1. ACTOS [Suspect]
     Indication: DIABETES MELLITUS NON-INSULIN-DEPENDENT
     Dosage: SEE IMAGE
     Route: 048
     Dates: end: 20061201
  2. ACTOS [Suspect]
     Indication: DIABETES MELLITUS NON-INSULIN-DEPENDENT
     Dosage: SEE IMAGE
     Route: 048
     Dates: start: 20050701
  3. METFORMIN HCL [Concomitant]
  4. GLYBURIDE [Concomitant]
  5. NORVASC [Concomitant]

REACTIONS (4)
  - BREAST CANCER FEMALE [None]
  - FLUID RETENTION [None]
  - HEPATIC CIRRHOSIS [None]
  - NEUROPATHY PERIPHERAL [None]
